FAERS Safety Report 24963341 (Version 1)
Quarter: 2025Q1

REPORT INFORMATION
  Report Type: Spontaneous
  Country: US (occurrence: US)
  Receive Date: 20250213
  Receipt Date: 20250213
  Transmission Date: 20250408
  Serious: No
  Sender: APOTEX
  Company Number: US-APOTEX-2025AP001677

PATIENT
  Age: 17 Year
  Sex: Female

DRUGS (2)
  1. PAROXETINE [Suspect]
     Active Substance: PAROXETINE
     Indication: Product used for unknown indication
     Route: 065
  2. PAROXETINE [Suspect]
     Active Substance: PAROXETINE
     Route: 065

REACTIONS (4)
  - Aggression [Unknown]
  - Intrusive thoughts [Unknown]
  - Crying [Unknown]
  - Drug withdrawal syndrome [Unknown]
